FAERS Safety Report 25005822 (Version 1)
Quarter: 2025Q1

REPORT INFORMATION
  Report Type: Spontaneous
  Country: KR (occurrence: KR)
  Receive Date: 20250224
  Receipt Date: 20250224
  Transmission Date: 20250409
  Serious: Yes (Other)
  Sender: NOVARTIS
  Company Number: KR-002147023-NVSC2025KR028272

PATIENT
  Age: 80 Year
  Sex: Female

DRUGS (12)
  1. IMATINIB [Suspect]
     Active Substance: IMATINIB
     Indication: Chronic myeloid leukaemia
     Route: 065
  2. IMATINIB [Suspect]
     Active Substance: IMATINIB
     Route: 065
  3. NILOTINIB [Suspect]
     Active Substance: NILOTINIB
     Indication: Product used for unknown indication
     Route: 065
     Dates: start: 202206
  4. NILOTINIB [Suspect]
     Active Substance: NILOTINIB
     Route: 065
  5. ASCIMINIB [Suspect]
     Active Substance: ASCIMINIB
     Indication: Product used for unknown indication
     Dosage: UNK, BID (2YR9M AFTER PRIOR TKI)
     Route: 065
     Dates: start: 202403
  6. ASCIMINIB [Suspect]
     Active Substance: ASCIMINIB
     Dosage: UNK, QD (20)
     Route: 065
     Dates: start: 202409
  7. ASCIMINIB [Suspect]
     Active Substance: ASCIMINIB
     Dosage: UNK, QD (2W ON/1W OFF)
     Route: 065
     Dates: start: 202412
  8. DASATINIB [Suspect]
     Active Substance: DASATINIB
     Indication: Product used for unknown indication
     Route: 065
     Dates: start: 202005, end: 202009
  9. DASATINIB [Suspect]
     Active Substance: DASATINIB
     Route: 065
     Dates: start: 202102
  10. DASATINIB [Suspect]
     Active Substance: DASATINIB
     Route: 065
     Dates: start: 202105
  11. DASATINIB [Suspect]
     Active Substance: DASATINIB
     Route: 065
  12. DASATINIB [Suspect]
     Active Substance: DASATINIB
     Route: 065

REACTIONS (7)
  - Thrombocytopenia [Unknown]
  - Sepsis [Unknown]
  - Neutropenia [Unknown]
  - Haematoma [Unknown]
  - Blood disorder [Unknown]
  - Treatment failure [Unknown]
  - Drug intolerance [Unknown]
